FAERS Safety Report 9124263 (Version 3)
Quarter: 2013Q3

REPORT INFORMATION
  Report Type: Report from Study
  Country: US (occurrence: US)
  Receive Date: 20130227
  Receipt Date: 20130822
  Transmission Date: 20140515
  Serious: Yes (Other)
  Sender: FDA-Public Use
  Company Number: US-ABBOTT-13P-163-1053293-00

PATIENT
  Age: 64 Year
  Sex: Female
  Weight: 93.07 kg

DRUGS (12)
  1. HUMIRA [Suspect]
     Indication: RHEUMATOID ARTHRITIS
     Dates: start: 20120918, end: 201306
  2. ANTIBIOTICS [Suspect]
     Indication: URINARY TRACT INFECTION
     Route: 048
     Dates: start: 201301, end: 201301
  3. PREDNISONE [Concomitant]
     Indication: RHEUMATOID ARTHRITIS
     Dates: start: 1998
  4. NAPROXEN [Concomitant]
     Indication: RHEUMATOID ARTHRITIS
  5. ZOLOFT [Concomitant]
     Indication: DEPRESSION
  6. METHOTREXATE [Concomitant]
     Indication: RHEUMATOID ARTHRITIS
  7. BABY ASPIRIN [Concomitant]
     Indication: PRODUCT USED FOR UNKNOWN INDICATION
  8. SPIRIVA [Concomitant]
     Indication: PRODUCT USED FOR UNKNOWN INDICATION
  9. FOLIC ACID [Concomitant]
     Indication: VITAMIN SUPPLEMENTATION
  10. MICARDIS [Concomitant]
     Indication: HYPERTENSION
  11. REMICADE [Concomitant]
     Indication: RHEUMATOID ARTHRITIS
     Dates: start: 2013
  12. CINNAMON [Concomitant]
     Indication: ASTHMA

REACTIONS (16)
  - Tremor [Not Recovered/Not Resolved]
  - Sleep apnoea syndrome [Not Recovered/Not Resolved]
  - Fatigue [Not Recovered/Not Resolved]
  - Mobility decreased [Not Recovered/Not Resolved]
  - Hypersomnia [Not Recovered/Not Resolved]
  - Traumatic lung injury [Not Recovered/Not Resolved]
  - Joint swelling [Not Recovered/Not Resolved]
  - Dyspnoea [Unknown]
  - Urinary tract infection [Recovered/Resolved]
  - Vulvovaginal mycotic infection [Recovered/Resolved]
  - Headache [Not Recovered/Not Resolved]
  - Drug ineffective [Not Recovered/Not Resolved]
  - Tremor [Unknown]
  - Gait disturbance [Unknown]
  - Upper respiratory tract infection [Not Recovered/Not Resolved]
  - Pleuritic pain [Not Recovered/Not Resolved]
